FAERS Safety Report 20709339 (Version 1)
Quarter: 2022Q2

REPORT INFORMATION
  Report Type: Report from Study
  Country: US (occurrence: US)
  Receive Date: 20220414
  Receipt Date: 20220414
  Transmission Date: 20220721
  Serious: No
  Sender: FDA-Public Use
  Company Number: US-NOVARTISTESTPH-NVSC2022US085233

PATIENT
  Sex: Female

DRUGS (2)
  1. PROMACTA [Suspect]
     Active Substance: ELTROMBOPAG OLAMINE
     Indication: Immune thrombocytopenia
     Dosage: 50 MG, QD
     Route: 048
     Dates: start: 20220202
  2. PROMACTA [Suspect]
     Active Substance: ELTROMBOPAG OLAMINE
     Dosage: 50 MG MONDAYS, WEDNESDAYS AND
     Route: 048
     Dates: start: 20220202

REACTIONS (3)
  - Platelet count increased [Unknown]
  - Dizziness [Unknown]
  - Vertigo [Unknown]
